FAERS Safety Report 18021730 (Version 1)
Quarter: 2020Q3

REPORT INFORMATION
  Report Type: Spontaneous
  Country: US (occurrence: US)
  Receive Date: 20200714
  Receipt Date: 20200714
  Transmission Date: 20201103
  Serious: No
  Sender: FDA-Public Use
  Company Number: US-LUPIN PHARMACEUTICALS INC.-2020-00642

PATIENT
  Sex: Female

DRUGS (1)
  1. GAVILYTE ? N [Suspect]
     Active Substance: POLYETHYLENE GLYCOL 3350\POTASSIUM CHLORIDE\SODIUM BICARBONATE\SODIUM CHLORIDE
     Indication: CONSTIPATION
     Dosage: 300 MILLILITER, QD (THROUGH CYSTOSTOMY TUBE)
     Route: 065
     Dates: start: 20191031

REACTIONS (4)
  - No adverse event [Unknown]
  - Off label use [Unknown]
  - Incorrect route of product administration [Unknown]
  - Inappropriate schedule of product administration [Unknown]
